FAERS Safety Report 6068296-0 (Version None)
Quarter: 2009Q1

REPORT INFORMATION
  Report Type: 
  Country: None (occurrence: None)
  Receive Date: 20090206
  Receipt Date: 20090130
  Transmission Date: 20090719
  Serious: Yes (Life-Threatening, Hospitalization)
  Sender: FDA-Public Use
  Company Number: PHHY2009CA03232

PATIENT
  Sex: Male

DRUGS (3)
  1. CLOZARIL [Suspect]
     Indication: SCHIZOPHRENIA
     Dosage: 500 MG, DAILY AD
     Dates: start: 20081125, end: 20090125
  2. CLOZARIL [Suspect]
     Indication: BIPOLAR DISORDER
  3. NOZINAN [Concomitant]
     Dosage: 50 MG, DAILY
     Dates: start: 20090116

REACTIONS (3)
  - AGITATION [None]
  - CONFUSIONAL STATE [None]
  - PSYCHOTIC DISORDER [None]
